FAERS Safety Report 23505608 (Version 1)
Quarter: 2024Q1

REPORT INFORMATION
  Report Type: Other
  Country: US (occurrence: None)
  Receive Date: 20240209
  Receipt Date: 20240209
  Transmission Date: 20240409
  Serious: Yes (Hospitalization)
  Sender: FDA-Public Use
  Company Number: US-ROCHE-3505680

PATIENT
  Age: 41 Year
  Sex: Female

DRUGS (23)
  1. XOLAIR [Suspect]
     Active Substance: OMALIZUMAB
     Indication: Asthma
     Dosage: ON 23/JAN/2024, RECEIVED LAST INJECTION OF OMALIZUMAB.
     Route: 058
  2. XOLAIR [Suspect]
     Active Substance: OMALIZUMAB
  3. BREO ELLIPTA [Concomitant]
     Active Substance: FLUTICASONE FUROATE\VILANTEROL TRIFENATATE
  4. IBUPROFEN [Concomitant]
     Active Substance: IBUPROFEN
  5. CALCIUM\CHOLECALCIFEROL [Concomitant]
     Active Substance: CALCIUM\CHOLECALCIFEROL
  6. CELEBREX [Concomitant]
     Active Substance: CELECOXIB
  7. CHOLECALCIFEROL [Concomitant]
     Active Substance: CHOLECALCIFEROL
  8. COLESEVELAM [Concomitant]
     Active Substance: COLESEVELAM
  9. EPINEPHRINE [Concomitant]
     Active Substance: EPINEPHRINE
  10. ESTRADIOL [Concomitant]
     Active Substance: ESTRADIOL
  11. FEXOFENADINE [Concomitant]
     Active Substance: FEXOFENADINE HYDROCHLORIDE
  12. HYDROXYZINE PAMOATE [Concomitant]
     Active Substance: HYDROXYZINE PAMOATE
  13. ORALONE [Concomitant]
     Active Substance: TRIAMCINOLONE ACETONIDE
  14. PANTOPRAZOLE [Concomitant]
     Active Substance: PANTOPRAZOLE
  15. PEPCID [Concomitant]
     Active Substance: FAMOTIDINE
  16. POTASSIUM CHLORIDE [Concomitant]
     Active Substance: POTASSIUM CHLORIDE
  17. PRISTIQ EXTENDED-RELEASE [Concomitant]
     Active Substance: DESVENLAFAXINE SUCCINATE
  18. SINGULAIR [Concomitant]
     Active Substance: MONTELUKAST SODIUM
  19. TACROLIMUS [Concomitant]
     Active Substance: TACROLIMUS
  20. TESTOSTERONE [Concomitant]
     Active Substance: TESTOSTERONE
  21. UBRELVY [Concomitant]
     Active Substance: UBROGEPANT
  22. VENTOLIN [Concomitant]
     Active Substance: ALBUTEROL SULFATE
  23. VITAMIN C [Concomitant]
     Active Substance: ASCORBIC ACID

REACTIONS (21)
  - Anaphylactic reaction [Unknown]
  - Mast cell activation syndrome [Unknown]
  - Vocal cord dysfunction [Unknown]
  - Leukocytosis [Unknown]
  - Hypertension [Unknown]
  - Anxiety [Unknown]
  - Depression [Unknown]
  - Connective tissue disorder [Unknown]
  - Arthralgia [Unknown]
  - Abnormal uterine bleeding [Unknown]
  - Endometriosis [Unknown]
  - Gastrooesophageal reflux disease [Unknown]
  - Irritable bowel syndrome [Unknown]
  - Iliotibial band syndrome [Unknown]
  - Laryngitis [Unknown]
  - Foot deformity [Unknown]
  - Lumbar radiculopathy [Unknown]
  - Rotator cuff syndrome [Unknown]
  - Snoring [Unknown]
  - Somnolence [Unknown]
  - Vitamin D deficiency [Unknown]
